FAERS Safety Report 12880637 (Version 1)
Quarter: 2016Q4

REPORT INFORMATION
  Report Type: Spontaneous
  Country: JP (occurrence: JP)
  Receive Date: 20161025
  Receipt Date: 20161025
  Transmission Date: 20170207
  Serious: Yes (Hospitalization, Other)
  Sender: FDA-Public Use
  Company Number: JP-GLAXOSMITHKLINE-JP2016JPN154269

PATIENT
  Sex: Male

DRUGS (3)
  1. AMERGE [Suspect]
     Active Substance: NARATRIPTAN HYDROCHLORIDE
     Indication: CLUSTER HEADACHE
     Route: 048
  2. IMIGRAN STATDOSE [Suspect]
     Active Substance: SUMATRIPTAN
     Dosage: UNK UNK, TID
     Route: 058
     Dates: start: 201610
  3. IMIGRAN STATDOSE [Suspect]
     Active Substance: SUMATRIPTAN
     Indication: CLUSTER HEADACHE
     Dosage: UNK
     Route: 058

REACTIONS (4)
  - Intentional product misuse [Unknown]
  - Cerebral vasoconstriction [Unknown]
  - Headache [Recovering/Resolving]
  - Medication overuse headache [Recovering/Resolving]

NARRATIVE: CASE EVENT DATE: 201610
